FAERS Safety Report 9878157 (Version 1)
Quarter: 2014Q1

REPORT INFORMATION
  Report Type: Spontaneous
  Country: FR (occurrence: FR)
  Receive Date: 20140206
  Receipt Date: 20140206
  Transmission Date: 20141002
  Serious: Yes (Hospitalization)
  Sender: FDA-Public Use
  Company Number: PHHY2014FR012315

PATIENT
  Age: 78 Year
  Sex: Male

DRUGS (4)
  1. TAREG [Suspect]
     Dosage: 80 MG, QD
     Route: 048
     Dates: end: 201310
  2. DIAMICRON LP [Suspect]
     Dosage: UNK UKN, UNK
  3. DIAMICRON LP [Suspect]
     Dosage: 30 MG, QD
     Route: 048
     Dates: start: 20130128, end: 201310
  4. STAGID [Concomitant]
     Dosage: UNK UKN, UNK
     Dates: end: 20130128

REACTIONS (4)
  - Hepatic fibrosis [Not Recovered/Not Resolved]
  - Interstitial lung disease [Not Recovered/Not Resolved]
  - Nephropathy [Not Recovered/Not Resolved]
  - Eosinophilia [Not Recovered/Not Resolved]
